FAERS Safety Report 12562362 (Version 6)
Quarter: 2020Q2

REPORT INFORMATION
  Report Type: Report from Study
  Country: US (occurrence: US)
  Receive Date: 20160715
  Receipt Date: 20200415
  Transmission Date: 20200713
  Serious: Yes (Hospitalization, Other)
  Sender: FDA-Public Use
  Company Number: US-SA-2016SA128743

PATIENT
  Age: 53 Year
  Sex: Female

DRUGS (5)
  1. ALEMTUZUMAB [Suspect]
     Active Substance: ALEMTUZUMAB
     Indication: MULTIPLE SCLEROSIS
     Dosage: 12 MG,QD
     Route: 041
     Dates: start: 20160608, end: 20160610
  2. ALEMTUZUMAB [Suspect]
     Active Substance: ALEMTUZUMAB
     Dosage: 12 MG, QD
     Route: 041
     Dates: start: 20150526, end: 20150529
  3. ALEMTUZUMAB [Suspect]
     Active Substance: ALEMTUZUMAB
     Dosage: 12 MG, QD
     Route: 041
     Dates: start: 20150601, end: 20150601
  4. OCREVUS [Concomitant]
     Active Substance: OCRELIZUMAB
     Dosage: 300 MG
     Route: 065
  5. VENTOLIN [Concomitant]
     Active Substance: ALBUTEROL SULFATE
     Indication: ASTHMA

REACTIONS (37)
  - Gait inability [Not Recovered/Not Resolved]
  - Pain [Not Recovered/Not Resolved]
  - Pneumonia [Unknown]
  - Pulmonary embolism [Unknown]
  - Fatigue [Not Recovered/Not Resolved]
  - Lip swelling [Unknown]
  - Swelling of eyelid [Unknown]
  - Hypersomnia [Not Recovered/Not Resolved]
  - Arthritis [Unknown]
  - Cough [Unknown]
  - Post herpetic neuralgia [Not Recovered/Not Resolved]
  - Multiple sclerosis [Not Recovered/Not Resolved]
  - Lower respiratory tract infection [Unknown]
  - Coma [Recovered/Resolved]
  - Pulmonary mass [Not Recovered/Not Resolved]
  - Disorientation [Unknown]
  - Condition aggravated [Not Recovered/Not Resolved]
  - Condition aggravated [Unknown]
  - Inflammatory bowel disease [Recovering/Resolving]
  - Ileus paralytic [Recovering/Resolving]
  - Sarcoidosis [Not Recovered/Not Resolved]
  - Dyspnoea [Not Recovered/Not Resolved]
  - Pneumonia [Recovered/Resolved]
  - Staphylococcal infection [Unknown]
  - Sepsis [Recovered/Resolved]
  - Malaise [Unknown]
  - Arthralgia [Not Recovered/Not Resolved]
  - Tooth disorder [Recovered/Resolved]
  - Balance disorder [Unknown]
  - Upper respiratory tract infection [Recovered/Resolved]
  - Herpes zoster [Not Recovered/Not Resolved]
  - Gait disturbance [Not Recovered/Not Resolved]
  - Aggression [Unknown]
  - Purulent discharge [Recovered/Resolved]
  - Laboratory test abnormal [Not Recovered/Not Resolved]
  - Memory impairment [Not Recovered/Not Resolved]
  - Chest pain [Not Recovered/Not Resolved]

NARRATIVE: CASE EVENT DATE: 2016
